FAERS Safety Report 9210515 (Version 3)
Quarter: 2013Q2

REPORT INFORMATION
  Report Type: Spontaneous
  Country: US (occurrence: US)
  Receive Date: 20130404
  Receipt Date: 20130502
  Transmission Date: 20140414
  Serious: No
  Sender: FDA-Public Use
  Company Number: US-PFIZER INC-2013106229

PATIENT
  Age: 56 Year
  Sex: Male
  Weight: 131 kg

DRUGS (4)
  1. LYRICA [Suspect]
     Indication: FIBROMYALGIA
     Dosage: 200 MG, 3X/DAY (EVERY 8 HOURS)
     Route: 048
     Dates: start: 2010
  2. LYRICA [Suspect]
     Indication: PAIN
  3. LISINOPRIL [Concomitant]
     Indication: HYPERTENSION
     Dosage: UNK
  4. FLUOXETINE [Concomitant]
     Indication: DEPRESSION
     Dosage: UNK

REACTIONS (1)
  - Pain [Not Recovered/Not Resolved]
